FAERS Safety Report 20127960 (Version 2)
Quarter: 2023Q4

REPORT INFORMATION
  Report Type: Spontaneous
  Country: US (occurrence: None)
  Receive Date: 20211129
  Receipt Date: 20231126
  Transmission Date: 20240110
  Serious: No
  Sender: FDA-Public Use
  Company Number: US-ROCHE-2874590

PATIENT
  Sex: Female
  Weight: 71.6 kg

DRUGS (2)
  1. HERCEPTIN [Suspect]
     Active Substance: TRASTUZUMAB
     Indication: Endometrial cancer
     Route: 041
     Dates: start: 20210414
  2. HERCEPTIN [Suspect]
     Active Substance: TRASTUZUMAB
     Route: 041
     Dates: start: 20210414

REACTIONS (2)
  - Off label use [Unknown]
  - Cataract [Unknown]

NARRATIVE: CASE EVENT DATE: 20210414
